FAERS Safety Report 4830309-9 (Version None)
Quarter: 2005Q4

REPORT INFORMATION
  Report Type: 
  Country: None (occurrence: None)
  Receive Date: 20051117
  Receipt Date: 20051028
  Transmission Date: 20060501
  Serious: Yes (Hospitalization)
  Sender: FDA-Public Use
  Company Number: DE-BRISTOL-MYERS SQUIBB COMPANY-13160817

PATIENT
  Age: 66 Year
  Sex: Male
  Weight: 105 kg

DRUGS (4)
  1. ABILIFY [Suspect]
     Indication: SCHIZOPHRENIA, PARANOID TYPE
     Route: 048
     Dates: start: 20050720, end: 20050730
  2. RISPERDAL [Concomitant]
     Indication: SCHIZOPHRENIA, PARANOID TYPE
     Dosage: ^SEVERAL YEARS^
  3. ZUCLOPENTHIXOL [Concomitant]
     Indication: SCHIZOPHRENIA, PARANOID TYPE
     Dates: end: 20050720
  4. CARBAMAZEPINE [Concomitant]
     Indication: SCHIZOPHRENIA, PARANOID TYPE
     Dates: end: 20050720

REACTIONS (3)
  - EXCITABILITY [None]
  - FLIGHT OF IDEAS [None]
  - MANIA [None]
